FAERS Safety Report 21288434 (Version 2)
Quarter: 2024Q3

REPORT INFORMATION
  Report Type: Spontaneous
  Country: CA (occurrence: CA)
  Receive Date: 20220902
  Receipt Date: 20240805
  Transmission Date: 20241016
  Serious: Yes (Death)
  Sender: MYLAN
  Company Number: CA-PFIZER INC-202201113761

PATIENT
  Age: 91 Year
  Sex: Male

DRUGS (4)
  1. VENLAFAXINE [Suspect]
     Active Substance: VENLAFAXINE HYDROCHLORIDE
     Indication: Wrong product administered
     Dosage: 112.5 MILLIGRAM
     Route: 065
  2. MORPHINE [Suspect]
     Active Substance: MORPHINE
     Indication: Wrong product administered
     Dosage: 5 MILLIGRAM
     Route: 065
  3. OLANZAPINE [Suspect]
     Active Substance: OLANZAPINE
     Indication: Wrong product administered
     Dosage: 2.5 MILLIGRAM
     Route: 065
  4. OXAZEPAM [Suspect]
     Active Substance: OXAZEPAM
     Indication: Wrong product administered
     Dosage: 5 MILLIGRAM
     Route: 065

REACTIONS (10)
  - Accidental death [Fatal]
  - Aspiration [Fatal]
  - Depressed level of consciousness [Fatal]
  - Dyspnoea [Fatal]
  - General physical health deterioration [Fatal]
  - Increased bronchial secretion [Fatal]
  - Oxygen saturation decreased [Fatal]
  - Pneumonia aspiration [Fatal]
  - Somnolence [Fatal]
  - Wrong product administered [Fatal]
